FAERS Safety Report 16124145 (Version 1)
Quarter: 2019Q1

REPORT INFORMATION
  Report Type: Spontaneous
  Country: US (occurrence: US)
  Receive Date: 20190327
  Receipt Date: 20190327
  Transmission Date: 20190418
  Serious: Yes (Hospitalization)
  Sender: FDA-Public Use
  Company Number: US-MYLANLABS-2019M1026747

PATIENT
  Age: 16 Year
  Sex: Male

DRUGS (3)
  1. PEGFILGRASTIM [Suspect]
     Active Substance: PEGFILGRASTIM
     Indication: SYNOVIAL SARCOMA
     Route: 065
     Dates: start: 20170121, end: 20170313
  2. DOXORUBICIN [Concomitant]
     Active Substance: DOXORUBICIN
     Indication: SYNOVIAL SARCOMA
     Dosage: UNK
     Route: 065
     Dates: start: 20170117
  3. IFOSFAMIDE. [Concomitant]
     Active Substance: IFOSFAMIDE
     Indication: SYNOVIAL SARCOMA
     Dosage: UNK
     Route: 065
     Dates: start: 20170117

REACTIONS (3)
  - Myositis [Recovering/Resolving]
  - Hidradenitis [Recovered/Resolved]
  - Splenomegaly [Recovering/Resolving]

NARRATIVE: CASE EVENT DATE: 20170221
